FAERS Safety Report 6412718-X (Version None)
Quarter: 2009Q4

REPORT INFORMATION
  Report Type: 
  Country: None (occurrence: None)
  Receive Date: 20091023
  Receipt Date: 20091021
  Transmission Date: 20100525
  Serious: Yes (Death, Hospitalization)
  Sender: FDA-Public Use
  Company Number: PHHY2009AR45441

PATIENT
  Sex: Female

DRUGS (1)
  1. EXELON [Suspect]
     Dosage: 10 CM 1 PATCH DAILY
     Route: 062
     Dates: start: 20080801

REACTIONS (2)
  - INFECTION [None]
  - RESPIRATORY ARREST [None]
